FAERS Safety Report 22304353 (Version 2)
Quarter: 2023Q2

REPORT INFORMATION
  Report Type: Spontaneous
  Country: DE (occurrence: DE)
  Receive Date: 20230510
  Receipt Date: 20230606
  Transmission Date: 20230722
  Serious: Yes (Other)
  Sender: FDA-Public Use
  Company Number: DE-BRACCO-2023DE02202

PATIENT
  Age: 52 Year
  Sex: Female

DRUGS (4)
  1. GADOTERIDOL [Suspect]
     Active Substance: GADOTERIDOL
     Dosage: 15 ML, SINGLE
     Route: 042
  2. GADOTERIDOL [Suspect]
     Active Substance: GADOTERIDOL
     Dosage: 20 ML, SINGLE
  3. GADOBENATE DIMEGLUMINE [Suspect]
     Active Substance: GADOBENATE DIMEGLUMINE
     Dosage: 15 ML, SINGLE
  4. GADOTERATE MEGLUMINE [Suspect]
     Active Substance: GADOTERATE MEGLUMINE
     Dosage: 12 ML, SINGLE

REACTIONS (2)
  - Neuropathy peripheral [Unknown]
  - Contrast media deposition [Unknown]
